FAERS Safety Report 6809537-9 (Version None)
Quarter: 2010Q2

REPORT INFORMATION
  Report Type: 
  Country: None (occurrence: None)
  Receive Date: 20100630
  Receipt Date: 20100617
  Transmission Date: 20101027
  Serious: Yes (Hospitalization)
  Sender: FDA-Public Use
  Company Number: PHHY2010FR39869

PATIENT
  Sex: Female

DRUGS (8)
  1. VOLTAREN [Suspect]
     Indication: SCIATICA
     Dosage: UNK
     Dates: start: 20100507, end: 20100517
  2. TETRAZEPAM [Suspect]
     Indication: SCIATICA
     Dosage: UNK
     Dates: start: 20100507, end: 20100517
  3. AMOXICILLIN [Suspect]
     Indication: TOOTH ABSCESS
     Dosage: UNK
     Dates: start: 20100511, end: 20100517
  4. TOPLEXIL [Concomitant]
  5. CANDESARTAN CILEXETIL/HYDROCHLOROTHIAZIDE (ATACAND HCT) [Concomitant]
  6. LOXEN [Concomitant]
  7. LEVOTHYROXINE SODIUM [Concomitant]
     Dosage: 87.5 MG
  8. PREDNISOLONE [Concomitant]

REACTIONS (10)
  - ABDOMINAL PAIN [None]
  - DYSPHAGIA [None]
  - FACE OEDEMA [None]
  - FEELING ABNORMAL [None]
  - LIP OEDEMA [None]
  - OROPHARYNGEAL PAIN [None]
  - PARAESTHESIA [None]
  - PRURITUS [None]
  - RASH MACULAR [None]
  - URTICARIA [None]
